FAERS Safety Report 10735638 (Version 2)
Quarter: 2015Q1

REPORT INFORMATION
  Report Type: Spontaneous
  Country: JP (occurrence: JP)
  Receive Date: 20150126
  Receipt Date: 20150320
  Transmission Date: 20150721
  Serious: Yes (Death)
  Sender: FDA-Public Use
  Company Number: JP-009507513-1501JPN009671

PATIENT
  Age: 36 Year
  Sex: Male
  Weight: 85 kg

DRUGS (11)
  1. JANUVIA [Suspect]
     Active Substance: SITAGLIPTIN PHOSPHATE
     Indication: BLOOD GLUCOSE INCREASED
     Dosage: 100 MG, ONCE A DAY
     Route: 048
     Dates: start: 20150118
  2. TRIPHEDINON [Concomitant]
     Dosage: 2 MG, BID
     Route: 048
  3. DEPAKENE [Concomitant]
     Active Substance: VALPROIC ACID
     Dosage: 200 MG, TID
     Route: 048
  4. RISPERDAL [Concomitant]
     Active Substance: RISPERIDONE
     Dosage: UP TO 3 TIMES WITH INTERVALS OF 4 HOURS, WHEN IRRITATED
     Route: 048
  5. LIMAS [Concomitant]
     Active Substance: LITHIUM CARBONATE
     Dosage: 200 MG, BID
     Route: 048
  6. SOLANAX [Concomitant]
     Active Substance: ALPRAZOLAM
     Dosage: 0.4 MG, BID
     Route: 048
  7. ACTOS [Suspect]
     Active Substance: PIOGLITAZONE HYDROCHLORIDE
     Indication: BLOOD GLUCOSE INCREASED
     Dosage: DAILY DOSE UNKNOWN
     Route: 048
     Dates: start: 20150118
  8. AMARYL [Suspect]
     Active Substance: GLIMEPIRIDE
     Indication: BLOOD GLUCOSE INCREASED
     Dosage: 1 MG, QD
     Route: 048
     Dates: start: 20150118
  9. RISPERDAL [Concomitant]
     Active Substance: RISPERIDONE
     Dosage: 1 MG, BID
     Route: 048
  10. AMOBAN [Concomitant]
     Active Substance: ZOPICLONE
     Dosage: 10 MG, QD
     Route: 048
  11. BENZALIN [Concomitant]
     Active Substance: NITRAZEPAM
     Dosage: 20 MG, QD
     Route: 048

REACTIONS (2)
  - Off label use [Unknown]
  - Type 1 diabetes mellitus [Fatal]

NARRATIVE: CASE EVENT DATE: 20150118
